FAERS Safety Report 7429430-0 (Version None)
Quarter: 2011Q2

REPORT INFORMATION
  Report Type: 
  Country: None (occurrence: None)
  Receive Date: 20110421
  Receipt Date: 20110408
  Transmission Date: 20111010
  Serious: Yes (Hospitalization)
  Sender: FDA-Public Use
  Company Number: CA-JNJFOC-20110404564

PATIENT
  Sex: Female
  Weight: 48.2 kg

DRUGS (3)
  1. IMURAN [Concomitant]
     Route: 048
  2. REMICADE [Suspect]
     Indication: COLITIS
     Route: 042
  3. REMICADE [Suspect]
     Indication: CROHN'S DISEASE
     Route: 042

REACTIONS (4)
  - ABDOMINAL PAIN UPPER [None]
  - ABORTION SPONTANEOUS [None]
  - CHEST PAIN [None]
  - DRUG EXPOSURE DURING PREGNANCY [None]
